FAERS Safety Report 5135227-7 (Version None)
Quarter: 2006Q4

REPORT INFORMATION
  Report Type: 
  Country: None (occurrence: None)
  Receive Date: 20061026
  Receipt Date: 20061017
  Transmission Date: 20070319
  Serious: Yes (Other)
  Sender: FDA-Public Use
  Company Number: GB-JNJFOC-20061004720

PATIENT
  Age: 29 Year
  Sex: Female

DRUGS (4)
  1. CONCERTA [Suspect]
     Indication: DRUG USE FOR UNKNOWN INDICATION
     Route: 065
  2. DOMPERIDONE [Concomitant]
  3. ACETAMINOPHEN W/ CODEINE [Concomitant]
  4. ZOPICLONE [Concomitant]

REACTIONS (1)
  - OPTIC NEURITIS [None]
